FAERS Safety Report 6036218-4 (Version None)
Quarter: 2009Q1

REPORT INFORMATION
  Report Type: 
  Country: None (occurrence: None)
  Receive Date: 20090113
  Receipt Date: 20090109
  Transmission Date: 20090719
  Serious: Yes (Hospitalization, Other)
  Sender: FDA-Public Use
  Company Number: JP-B.I. PHARMACEUTICALS,INC./RIDGEFIELD-2008-BP-18229NB

PATIENT
  Sex: Female
  Weight: 47.2 kg

DRUGS (5)
  1. MICARDIS [Suspect]
     Indication: HYPERTENSION
     Dosage: 40MG
     Route: 048
     Dates: start: 20061106
  2. BASEN [Concomitant]
     Dosage: .9MG
     Route: 048
  3. METFORMIN HCL [Concomitant]
     Dosage: 750MG
     Route: 048
  4. ASPIRIN [Concomitant]
     Dosage: 100MG
     Route: 048
  5. LIVALO [Concomitant]
     Dosage: 2MG
     Route: 048

REACTIONS (1)
  - ANGINA UNSTABLE [None]
